FAERS Safety Report 7404305-1 (Version None)
Quarter: 2011Q2

REPORT INFORMATION
  Report Type: 
  Country: None (occurrence: None)
  Receive Date: 20110408
  Receipt Date: 20110329
  Transmission Date: 20111010
  Serious: Yes (Other)
  Sender: FDA-Public Use
  Company Number: US-JNJFOC-20110312179

PATIENT
  Sex: Female
  Weight: 52.16 kg

DRUGS (7)
  1. VITAMIN B-12 [Concomitant]
     Indication: ANAEMIA
     Dosage: 1000MCG WEEKLY
     Route: 030
  2. PRAVASTATIN [Concomitant]
     Indication: BLOOD TRIGLYCERIDES INCREASED
  3. FOLIC ACID [Concomitant]
     Indication: ANAEMIA
     Route: 048
  4. CHOLESTRAN [Concomitant]
     Indication: BLOOD CHOLESTEROL
     Route: 048
  5. VITAMIN D [Concomitant]
     Indication: ANAEMIA
     Dosage: 800-1000MCG DAILY
     Route: 048
  6. REMICADE [Suspect]
     Indication: CROHN'S DISEASE
     Route: 042
  7. ESTRING [Concomitant]
     Indication: ANTIFUNGAL PROPHYLAXIS
     Route: 067

REACTIONS (3)
  - LYMPHADENOPATHY [None]
  - INTESTINAL STENOSIS [None]
  - PLATELET COUNT INCREASED [None]
